FAERS Safety Report 9350770 (Version 1)
Quarter: 2013Q2

REPORT INFORMATION
  Report Type: Spontaneous
  Country: ES (occurrence: ES)
  Receive Date: 20130617
  Receipt Date: 20130617
  Transmission Date: 20140414
  Serious: Yes (Hospitalization)
  Sender: FDA-Public Use
  Company Number: PHHY2013ES061297

PATIENT
  Age: 46 Year
  Sex: 0

DRUGS (1)
  1. GILENYA [Suspect]
     Route: 048

REACTIONS (3)
  - Ataxia [Unknown]
  - Pain in extremity [Unknown]
  - Fatigue [Unknown]
